FAERS Safety Report 7237888-5 (Version None)
Quarter: 2011Q1

REPORT INFORMATION
  Report Type: 
  Country: None (occurrence: None)
  Receive Date: 20110121
  Receipt Date: 20110113
  Transmission Date: 20110831
  Serious: Yes (Other)
  Sender: FDA-Public Use
  Company Number: JP-ROCHE-754118

PATIENT
  Age: 48 Year
  Sex: Female

DRUGS (2)
  1. TAMIFLU [Suspect]
     Dosage: NOTE: DOSAGE IS UNCERTAIN.
     Route: 048
  2. SOLANAX [Concomitant]
     Route: 048

REACTIONS (1)
  - ALTERED STATE OF CONSCIOUSNESS [None]
